FAERS Safety Report 5091006-0 (Version None)
Quarter: 2006Q3

REPORT INFORMATION
  Report Type: 
  Country: None (occurrence: None)
  Receive Date: 20060829
  Receipt Date: 20060105
  Transmission Date: 20061208
  Serious: No
  Sender: FDA-Public Use
  Company Number: 0014624

PATIENT
  Sex: Female

DRUGS (1)
  1. ZOVIRAX [Suspect]
     Dosage: 5PCT UNKNOWN
     Route: 061

REACTIONS (2)
  - DRUG INEFFECTIVE [None]
  - SCAR [None]
